FAERS Safety Report 12419002 (Version 1)
Quarter: 2016Q2

REPORT INFORMATION
  Report Type: Spontaneous
  Country: US (occurrence: US)
  Receive Date: 20160531
  Receipt Date: 20160531
  Transmission Date: 20160815
  Serious: No
  Sender: FDA-Public Use
  Company Number: US-BAYER-2016-099257

PATIENT
  Age: 78 Year
  Sex: Female
  Weight: 49.89 kg

DRUGS (4)
  1. ATIVAN [Concomitant]
     Active Substance: LORAZEPAM
  2. VITAMIN C [Concomitant]
     Active Substance: ASCORBIC ACID
  3. MIRALAX [Suspect]
     Active Substance: POLYETHYLENE GLYCOL 3350
     Indication: CONSTIPATION
     Dosage: 1 DF, QD
     Route: 048
     Dates: start: 20160301
  4. CRANBERRY. [Concomitant]
     Active Substance: CRANBERRY
     Dosage: UNK

REACTIONS (5)
  - Product use issue [None]
  - Circumstance or information capable of leading to medication error [None]
  - Drug prescribing error [None]
  - Drug prescribing error [None]
  - Diarrhoea [None]

NARRATIVE: CASE EVENT DATE: 201603
